FAERS Safety Report 9716634 (Version 1)
Quarter: 2013Q4

REPORT INFORMATION
  Report Type: Spontaneous
  Country: US (occurrence: US)
  Receive Date: 20131127
  Receipt Date: 20131127
  Transmission Date: 20140711
  Serious: No
  Sender: FDA-Public Use
  Company Number: US-PFIZER INC-2013337419

PATIENT
  Age: 61 Year
  Sex: Female

DRUGS (9)
  1. LOPID [Suspect]
     Dosage: UNK
  2. AZITHROMYCIN [Suspect]
     Dosage: UNK
  3. CLARITHROMYCIN [Suspect]
     Dosage: UNK
  4. TRIMETHOPRIM [Suspect]
     Dosage: UNK
  5. ERYTHROMYCIN [Suspect]
     Dosage: UNK
  6. SULFAMETHOXAZOLE [Suspect]
     Dosage: UNK
  7. BACTRIM [Suspect]
     Dosage: UNK
  8. CODEINE [Suspect]
     Dosage: UNK
  9. TIZANIDINE [Suspect]
     Dosage: UNK

REACTIONS (1)
  - Drug hypersensitivity [Unknown]
